FAERS Safety Report 5600481-1 (Version None)
Quarter: 2008Q1

REPORT INFORMATION
  Report Type: 
  Country: None (occurrence: None)
  Receive Date: 20080123
  Receipt Date: 20070614
  Transmission Date: 20080703
  Serious: Yes (Death)
  Sender: FDA-Public Use
  Company Number: US-ABBOTT-07P-163-0372074-00

PATIENT
  Sex: Female

DRUGS (2)
  1. DEPACON [Suspect]
     Indication: DRUG USE FOR UNKNOWN INDICATION
  2. LEVETIRACETAM [Suspect]
     Indication: HEADACHE

REACTIONS (1)
  - THROMBOCYTOPENIA [None]
